FAERS Safety Report 12825508 (Version 2)
Quarter: 2016Q4

REPORT INFORMATION
  Report Type: Spontaneous
  Country: SI (occurrence: SI)
  Receive Date: 20161007
  Receipt Date: 20161121
  Transmission Date: 20170207
  Serious: Yes (Death, Hospitalization)
  Sender: FDA-Public Use
  Company Number: SI-JNJFOC-20161004315

PATIENT
  Age: 79 Year
  Sex: Male

DRUGS (7)
  1. CIPRALEX [Suspect]
     Active Substance: ESCITALOPRAM OXALATE
     Indication: PRODUCT USED FOR UNKNOWN INDICATION
     Route: 048
     Dates: start: 20160915, end: 20160920
  2. KVENTIAX [Suspect]
     Active Substance: QUETIAPINE FUMARATE
     Indication: PRODUCT USED FOR UNKNOWN INDICATION
     Route: 048
     Dates: start: 20160920
  3. CYMBALTA [Suspect]
     Active Substance: DULOXETINE HYDROCHLORIDE
     Indication: PRODUCT USED FOR UNKNOWN INDICATION
     Route: 048
     Dates: start: 20160921
  4. DUROGESIC [Suspect]
     Active Substance: FENTANYL
     Indication: PAIN
     Route: 062
     Dates: start: 20160617
  5. TRIPTORELIN [Concomitant]
     Active Substance: TRIPTORELIN
     Indication: PROSTATE CANCER METASTATIC
     Route: 030
     Dates: start: 201206
  6. HALDOL [Suspect]
     Active Substance: HALOPERIDOL
     Indication: PRODUCT USED FOR UNKNOWN INDICATION
     Route: 030
     Dates: start: 20160915
  7. ARCOXIA [Suspect]
     Active Substance: ETORICOXIB
     Indication: PAIN
     Route: 048
     Dates: start: 20160916

REACTIONS (8)
  - Pain [Unknown]
  - Confusional state [Unknown]
  - Fear [Unknown]
  - Agitation [Not Recovered/Not Resolved]
  - Aggression [Not Recovered/Not Resolved]
  - Insomnia [Unknown]
  - Condition aggravated [Fatal]
  - Personality change [Unknown]

NARRATIVE: CASE EVENT DATE: 201609
